FAERS Safety Report 16828047 (Version 1)
Quarter: 2019Q4

REPORT INFORMATION
  Report Type: Spontaneous
  Country: US (occurrence: US)
  Receive Date: 20190919
  Receipt Date: 20190919
  Transmission Date: 20200122
  Serious: Yes (Hospitalization)
  Sender: FDA-Public Use
  Company Number: None

PATIENT
  Age: 83 Year
  Sex: Female

DRUGS (12)
  1. EYLEA [Suspect]
     Active Substance: AFLIBERCEPT
     Indication: MACULAR DEGENERATION
     Dosage: 2 MG INTRAVITREALLY EVERY 4 TO 6 WEEKS
     Dates: start: 20170411
  2. ENALAPRIL [Concomitant]
     Active Substance: ENALAPRIL
     Dates: start: 20170412
  3. VITAMIN B12 [Concomitant]
     Active Substance: CYANOCOBALAMIN
     Dates: start: 20170412
  4. RANITIDINE. [Concomitant]
     Active Substance: RANITIDINE
     Dates: start: 20170412
  5. NITRFURANTOIN [Concomitant]
     Dates: start: 20170412
  6. ATORVASTATIN [Concomitant]
     Active Substance: ATORVASTATIN
     Dates: start: 20170412
  7. METFORMIN [Concomitant]
     Active Substance: METFORMIN HYDROCHLORIDE
     Dates: start: 20170412
  8. VITAMIN D3 [Concomitant]
     Active Substance: CHOLECALCIFEROL
     Dates: start: 20170412
  9. LANSOPRAZOLE. [Concomitant]
     Active Substance: LANSOPRAZOLE
     Dates: start: 20170412
  10. COENZYME Q10 [Concomitant]
     Active Substance: UBIDECARENONE
     Dates: start: 20170412
  11. ASPIRIN. [Concomitant]
     Active Substance: ASPIRIN
     Dates: start: 20170412
  12. AMLODIPINE/HCTZ [Concomitant]
     Dates: start: 20170412

REACTIONS (1)
  - Hospitalisation [None]
